FAERS Safety Report 8960556 (Version 1)
Quarter: 2012Q4

REPORT INFORMATION
  Report Type: Spontaneous
  Country: US (occurrence: None)
  Receive Date: 20121213
  Receipt Date: 20121213
  Transmission Date: 20130627
  Serious: No
  Sender: FDA-Public Use
  Company Number: None

PATIENT
  Age: 66 Year
  Sex: Female
  Weight: 116.58 kg

DRUGS (1)
  1. METHYLPREDNISOLONE ACETATE [Suspect]
     Indication: SACROILIITIS
     Dosage: 40mg PRN Intra-articular
     Route: 014
     Dates: start: 20120717, end: 20120926

REACTIONS (4)
  - Headache [None]
  - Hypoaesthesia [None]
  - Paraesthesia [None]
  - Burning sensation [None]
